FAERS Safety Report 25982166 (Version 1)
Quarter: 2025Q4

REPORT INFORMATION
  Report Type: Spontaneous
  Country: US (occurrence: US)
  Receive Date: 20251031
  Receipt Date: 20251031
  Transmission Date: 20260117
  Serious: No
  Sender: EDENBRIDGE
  Company Number: US-EDENBRIDGE PHARMACEUTICALS, LLC-US-2024EDE000044

PATIENT
  Sex: Male

DRUGS (1)
  1. IVERMECTIN [Suspect]
     Active Substance: IVERMECTIN
     Indication: Product used for unknown indication
     Dosage: 3 MG
     Route: 065
     Dates: start: 202406

REACTIONS (1)
  - Expired product administered [Unknown]

NARRATIVE: CASE EVENT DATE: 20240601
